FAERS Safety Report 14617227 (Version 2)
Quarter: 2018Q2

REPORT INFORMATION
  Report Type: Report from Study
  Country: US (occurrence: US)
  Receive Date: 20180309
  Receipt Date: 20180402
  Transmission Date: 20180711
  Serious: Yes (Death, Hospitalization)
  Sender: FDA-Public Use
  Company Number: US-BAYER-2018-034316

PATIENT
  Age: 59 Year
  Sex: Male

DRUGS (4)
  1. NOVOLIN [Concomitant]
     Active Substance: INSULIN HUMAN
  2. NEXAVAR [Suspect]
     Active Substance: SORAFENIB
     Indication: HEPATOCELLULAR CARCINOMA
     Dosage: 400 MG, BID
     Route: 048
     Dates: start: 20180209
  3. ATORVASTATIN CALCIUM. [Concomitant]
     Active Substance: ATORVASTATIN CALCIUM
  4. LACTULOSE. [Concomitant]
     Active Substance: LACTULOSE

REACTIONS (4)
  - Dyspnoea [Recovered/Resolved]
  - Death [Fatal]
  - Hospitalisation [None]
  - Cough [None]

NARRATIVE: CASE EVENT DATE: 2018
